FAERS Safety Report 22626321 (Version 1)
Quarter: 2023Q2

REPORT INFORMATION
  Report Type: Spontaneous
  Country: BR (occurrence: BR)
  Receive Date: 20230621
  Receipt Date: 20230621
  Transmission Date: 20230722
  Serious: Yes (Hospitalization, Other)
  Sender: FDA-Public Use
  Company Number: BR-GE HEALTHCARE-2023CSU005021

PATIENT
  Age: 88 Year
  Sex: Female
  Weight: 65 kg

DRUGS (15)
  1. OMNIPAQUE [Suspect]
     Active Substance: IOHEXOL
     Indication: Catheterisation cardiac
     Dosage: UNK UNK, SINGLE
     Route: 042
     Dates: start: 20230523, end: 20230523
  2. OMNIPAQUE [Suspect]
     Active Substance: IOHEXOL
     Indication: Angina unstable
  3. OMNIPAQUE [Suspect]
     Active Substance: IOHEXOL
     Indication: Intervertebral disc disorder
  4. CILOSTAZOL [Concomitant]
     Active Substance: CILOSTAZOL
     Dosage: 50 MG
  5. LOSARTAN [Concomitant]
     Active Substance: LOSARTAN
     Dosage: 12.5 MG, QD
  6. METOPROLOL [Concomitant]
     Active Substance: METOPROLOL
     Dosage: 50 MG, BID
  7. ASPIRIN\DIHYDROXYALUMINUM AMINOACETATE ANHYDROUS\MAGNESIUM CARBONATE [Concomitant]
     Active Substance: ASPIRIN\DIHYDROXYALUMINUM AMINOACETATE ANHYDROUS\MAGNESIUM CARBONATE
     Dosage: UNK, QD
  8. SIMVASTATIN [Concomitant]
     Active Substance: SIMVASTATIN
     Dosage: 20 MG, QD
  9. CLOPIDOGREL [Concomitant]
     Active Substance: CLOPIDOGREL BISULFATE
     Dosage: 75 MG, QD
  10. EZETIMIBE [Concomitant]
     Active Substance: EZETIMIBE
     Dosage: 10MG, THRICE A WEEK
  11. OMEPRAZOLE [Concomitant]
     Active Substance: OMEPRAZOLE
     Dosage: 20 MG, QD
  12. DULOXETINE HYDROCHLORIDE [Concomitant]
     Active Substance: DULOXETINE HYDROCHLORIDE
     Dosage: 60 MG, QD
  13. NALTREXONE [Concomitant]
     Active Substance: NALTREXONE
     Dosage: 3 MG, QD
  14. Artrofan [Concomitant]
     Dosage: UNK, QD
  15. ACETYLCYSTEINE [Concomitant]
     Active Substance: ACETYLCYSTEINE
     Dosage: UNK, QD

REACTIONS (5)
  - Salivary hypersecretion [Recovered/Resolved]
  - Agitation [Recovered/Resolved]
  - Oxygen saturation decreased [Recovered/Resolved]
  - Hypotension [Recovered/Resolved]
  - Respiratory distress [Recovered/Resolved]

NARRATIVE: CASE EVENT DATE: 20230523
